FAERS Safety Report 23255703 (Version 1)
Quarter: 2023Q4

REPORT INFORMATION
  Report Type: Spontaneous
  Country: IT (occurrence: IT)
  Receive Date: 20231204
  Receipt Date: 20231204
  Transmission Date: 20240110
  Serious: Yes (Hospitalization)
  Sender: FDA-Public Use
  Company Number: None

PATIENT
  Age: 19 Year
  Sex: Male

DRUGS (3)
  1. HALDOL [Suspect]
     Active Substance: HALOPERIDOL
     Indication: Product used for unknown indication
     Dosage: 15 GTT 2 VOLTE/DIE
     Route: 048
     Dates: start: 20231116, end: 20231117
  2. QUETIAPINE [Concomitant]
     Active Substance: QUETIAPINE
     Dosage: TERAPIA CRONICA - DAL 16/11 A SCALARE DA 200 MG A 100 MG
     Route: 048
     Dates: start: 20231116
  3. RIVOTRIL [Concomitant]
     Active Substance: CLONAZEPAM
     Dosage: TERAPIA CRONICA - DAL 16/11 A SCALARE DA 10 GTT A 5 GTT
     Route: 048
     Dates: start: 20231116, end: 20231117

REACTIONS (5)
  - Polyuria [Recovering/Resolving]
  - Dystonia [Recovering/Resolving]
  - Hypertonia [Recovering/Resolving]
  - Tachycardia [Recovering/Resolving]
  - Dyskinesia [Recovering/Resolving]

NARRATIVE: CASE EVENT DATE: 20231117
